FAERS Safety Report 6411952-2 (Version None)
Quarter: 2009Q4

REPORT INFORMATION
  Report Type: 
  Country: None (occurrence: None)
  Receive Date: 20091020
  Receipt Date: 20091007
  Transmission Date: 20100525
  Serious: Yes (Hospitalization)
  Sender: FDA-Public Use
  Company Number: 2009AC000201

PATIENT
  Age: 71 Year
  Sex: Female

DRUGS (37)
  1. DIGOXIN [Suspect]
     Dosage: 0.25 MG; QD; PO
     Route: 048
     Dates: start: 20030101, end: 20080301
  2. LESCOL [Concomitant]
  3. ACCOLATE [Concomitant]
  4. LASIX [Concomitant]
  5. NEBUMETONE [Concomitant]
  6. HYDROCHLOROTHIAZIDE [Concomitant]
  7. VERAPAMIL [Concomitant]
  8. SIMVASTATIN [Concomitant]
  9. LEVEOTHYROXIN [Concomitant]
  10. HUMLIN [Concomitant]
  11. LISINOPRIL [Concomitant]
  12. ACTOS [Concomitant]
  13. ZOCOR [Concomitant]
  14. NORVASC [Concomitant]
  15. KLOR-CON [Concomitant]
  16. METFORMIN HCL [Concomitant]
  17. AVELOX [Concomitant]
  18. LEVOXYL [Concomitant]
  19. BIAXIN [Concomitant]
  20. AMIBID [Concomitant]
  21. CEFUROXIME [Concomitant]
  22. ENALAPRIL [Concomitant]
  23. GLUCOSAMINE [Concomitant]
  24. IBUPROFEN [Concomitant]
  25. LANTUS [Concomitant]
  26. ARICEPT [Concomitant]
  27. HUMALOG [Concomitant]
  28. COMPAZINE [Concomitant]
  29. LEVAQUIN [Concomitant]
  30. ASPIRIN [Concomitant]
  31. CELEXA [Concomitant]
  32. NORVASC [Concomitant]
  33. LEVOTHYROXINE SODIUM [Concomitant]
  34. POTASSIUM CHLORIDE [Concomitant]
  35. ASPIRIN [Concomitant]
  36. ENALAPRIL [Concomitant]
  37. ATENOLOL [Concomitant]

REACTIONS (36)
  - ATRIOVENTRICULAR BLOCK SECOND DEGREE [None]
  - BACK PAIN [None]
  - BLOOD GLUCOSE INCREASED [None]
  - BLOOD UREA INCREASED [None]
  - BRONCHOPNEUMONIA [None]
  - BURSA DISORDER [None]
  - CARDIAC MURMUR [None]
  - CAROTID BRUIT [None]
  - COLITIS [None]
  - CONFUSIONAL STATE [None]
  - DEMENTIA [None]
  - DEPRESSION [None]
  - DIABETES MELLITUS INADEQUATE CONTROL [None]
  - ECONOMIC PROBLEM [None]
  - EMOTIONAL DISORDER [None]
  - EPISTAXIS [None]
  - EYELID PTOSIS [None]
  - FATIGUE [None]
  - FUNGAL INFECTION [None]
  - GASTROENTERITIS [None]
  - HYPERTENSION [None]
  - INJURY [None]
  - JOINT SWELLING [None]
  - LETHARGY [None]
  - LOWER RESPIRATORY TRACT INFECTION [None]
  - NAUSEA [None]
  - NOCTURIA [None]
  - OEDEMA PERIPHERAL [None]
  - PARAESTHESIA [None]
  - SINUS CONGESTION [None]
  - SOMNOLENCE [None]
  - TENSION HEADACHE [None]
  - THERAPEUTIC AGENT TOXICITY [None]
  - TOOTHACHE [None]
  - TREATMENT NONCOMPLIANCE [None]
  - WEIGHT DECREASED [None]
